FAERS Safety Report 25075829 (Version 1)
Quarter: 2025Q1

REPORT INFORMATION
  Report Type: Spontaneous
  Country: US (occurrence: US)
  Receive Date: 20250313
  Receipt Date: 20250313
  Transmission Date: 20250409
  Serious: Yes (Other)
  Sender: Vantive US Healthcare
  Company Number: US-VANTIVE-2025VAN001194

PATIENT
  Sex: Female

DRUGS (1)
  1. DIANEAL [Suspect]
     Active Substance: CALCIUM CHLORIDE\DEXTROSE\MAGNESIUM CHLORIDE\SODIUM CHLORIDE\SODIUM LACTATE
     Route: 033

REACTIONS (4)
  - Noninfectious peritonitis [Unknown]
  - Peritoneal cloudy effluent [Unknown]
  - Eosinophilia [Unknown]
  - Abdominal pain [Not Recovered/Not Resolved]
